FAERS Safety Report 9717019 (Version 1)
Quarter: 2013Q4

REPORT INFORMATION
  Report Type: Spontaneous
  Country: US (occurrence: US)
  Receive Date: 20131127
  Receipt Date: 20131127
  Transmission Date: 20140711
  Serious: No
  Sender: FDA-Public Use
  Company Number: US-GILEAD-2009-0020344

PATIENT
  Age: 73 Year
  Sex: Female

DRUGS (6)
  1. LETAIRIS [Suspect]
     Indication: PULMONARY ARTERIAL HYPERTENSION
     Route: 048
     Dates: start: 20081203, end: 20090130
  2. SPIRIVA [Concomitant]
  3. NASONEX [Concomitant]
  4. HCTZ [Concomitant]
  5. PULMICORT [Concomitant]
  6. ALBUTEROL [Concomitant]

REACTIONS (3)
  - Diarrhoea [Unknown]
  - Dyspnoea [Recovered/Resolved]
  - Headache [Unknown]
